FAERS Safety Report 17194213 (Version 1)
Quarter: 2019Q4

REPORT INFORMATION
  Report Type: Spontaneous
  Country: FR (occurrence: FR)
  Receive Date: 20191224
  Receipt Date: 20191224
  Transmission Date: 20200122
  Serious: Yes (Other)
  Sender: FDA-Public Use
  Company Number: FR-ROCHE-2503455

PATIENT
  Age: 73 Year
  Sex: Female

DRUGS (2)
  1. XOLAIR [Suspect]
     Active Substance: OMALIZUMAB
     Indication: URTICARIA CHRONIC
     Dosage: 300 MG, Q4W
     Route: 058
     Dates: start: 201902
  2. CETIRIZINE [Suspect]
     Active Substance: CETIRIZINE HYDROCHLORIDE
     Indication: URTICARIA CHRONIC
     Dosage: 1 DF, QD
     Route: 048
     Dates: start: 201904

REACTIONS (2)
  - Disturbance in attention [Not Recovered/Not Resolved]
  - Memory impairment [Not Recovered/Not Resolved]

NARRATIVE: CASE EVENT DATE: 201906
